FAERS Safety Report 5415850-2 (Version None)
Quarter: 2007Q3

REPORT INFORMATION
  Report Type: 
  Country: None (occurrence: None)
  Receive Date: 20070815
  Receipt Date: 20070805
  Transmission Date: 20080115
  Serious: Yes (Other)
  Sender: FDA-Public Use
  Company Number: US-PFIZER INC-2007065237

PATIENT
  Sex: Male
  Weight: 88.636 kg

DRUGS (3)
  1. CADUET [Suspect]
     Indication: HYPERTENSION
     Dosage: TEXT:5/10MG ONCE DAILY
  2. CADUET [Suspect]
     Indication: BLOOD CHOLESTEROL INCREASED
  3. NEXIUM [Concomitant]

REACTIONS (9)
  - BLOOD GLUCOSE INCREASED [None]
  - CEREBROVASCULAR ACCIDENT [None]
  - DIZZINESS [None]
  - HYPERTENSION [None]
  - MOVEMENT DISORDER [None]
  - MUSCULAR WEAKNESS [None]
  - MUSCULOSKELETAL CHEST PAIN [None]
  - RHABDOMYOLYSIS [None]
  - TREMOR [None]
